FAERS Safety Report 7762735-2 (Version None)
Quarter: 2011Q3

REPORT INFORMATION
  Report Type: 
  Country: None (occurrence: None)
  Receive Date: 20110920
  Receipt Date: 20110916
  Transmission Date: 20111222
  Serious: Yes (Death, Hospitalization, Other)
  Sender: FDA-Public Use
  Company Number: TW-PFIZER INC-2011219267

PATIENT

DRUGS (1)
  1. SUTENT [Suspect]
     Indication: GASTROINTESTINAL STROMAL TUMOUR
     Dosage: 1 TAB, THREE TIMES A DAY
     Route: 048

REACTIONS (4)
  - PYREXIA [None]
  - EMBOLISM [None]
  - DEATH [None]
  - MALNUTRITION [None]
